FAERS Safety Report 8491661-9 (Version None)
Quarter: 2012Q3

REPORT INFORMATION
  Report Type: 
  Country: None (occurrence: None)
  Receive Date: 20120706
  Receipt Date: 20120628
  Transmission Date: 20120928
  Serious: Yes (Hospitalization, Other)
  Sender: FDA-Public Use
  Company Number: JP-B.I. PHARMACEUTICALS,INC./RIDGEFIELD-2012-BP-13217NB

PATIENT
  Age: 86 Year
  Sex: Female

DRUGS (5)
  1. PRADAXA [Suspect]
     Indication: THROMBOSIS PROPHYLAXIS
     Dosage: 150 MG
     Route: 048
     Dates: start: 20120201, end: 20120228
  2. DILTIAZEM HCL [Concomitant]
     Route: 065
  3. ONEALFA [Concomitant]
     Route: 065
  4. PRADAXA [Suspect]
     Dosage: 220 MG
     Route: 048
     Dates: start: 20120228, end: 20120510
  5. ARICEPT [Concomitant]
     Route: 065

REACTIONS (6)
  - ANAEMIA [None]
  - DIARRHOEA [None]
  - OCCULT BLOOD POSITIVE [None]
  - NEOPLASM MALIGNANT [None]
  - CONSTIPATION [None]
  - VOMITING [None]
